FAERS Safety Report 6809474-X (Version None)
Quarter: 2010Q2

REPORT INFORMATION
  Report Type: 
  Country: None (occurrence: None)
  Receive Date: 20100625
  Receipt Date: 20100617
  Transmission Date: 20101027
  Serious: Yes (Hospitalization)
  Sender: FDA-Public Use
  Company Number: 013839

PATIENT
  Sex: Female
  Weight: 10 kg

DRUGS (4)
  1. LEVETIRACETAM [Suspect]
     Indication: CONVULSION
     Dosage: MAX DOSE: 200 MG/KG/DAY INTRAVENOUS (NOT OTHERWISE SPECIFIED)
     Route: 042
  2. OXCARBAZEPINE [Concomitant]
  3. PHENOBARBITAL [Concomitant]
  4. VALPROIC ACID [Concomitant]

REACTIONS (2)
  - CONVULSION [None]
  - DRUG EFFECT DECREASED [None]
